FAERS Safety Report 6663609-0 (Version None)
Quarter: 2010Q2

REPORT INFORMATION
  Report Type: 
  Country: None (occurrence: None)
  Receive Date: 20100401
  Receipt Date: 20100310
  Transmission Date: 20101027
  Serious: Yes (Death, Life-Threatening, Hospitalization)
  Sender: FDA-Public Use
  Company Number: JP-ROCHE-655441

PATIENT
  Sex: Male
  Weight: 63 kg

DRUGS (12)
  1. AVASTIN [Suspect]
     Indication: COLON CANCER METASTATIC
     Route: 041
     Dates: start: 20090727, end: 20090727
  2. ELPLAT [Concomitant]
     Route: 041
     Dates: start: 20090709, end: 20090709
  3. ELPLAT [Concomitant]
     Route: 041
     Dates: start: 20090727, end: 20090727
  4. FLUOROURACIL [Concomitant]
     Dosage: IV BOLUS
     Route: 042
     Dates: start: 20090709, end: 20090710
  5. FLUOROURACIL [Concomitant]
     Dosage: IV DRIP
     Route: 042
     Dates: start: 20090709, end: 20090711
  6. FLUOROURACIL [Concomitant]
     Dosage: IV BOLUS
     Route: 042
     Dates: start: 20090727, end: 20090728
  7. FLUOROURACIL [Concomitant]
     Dosage: IV DRIP
     Route: 042
     Dates: start: 20090727, end: 20090729
  8. ISOVORIN [Concomitant]
     Route: 041
     Dates: start: 20090709, end: 20090710
  9. ISOVORIN [Concomitant]
     Route: 041
     Dates: start: 20090727, end: 20090728
  10. GLYSENNID [Concomitant]
     Dosage: TAKEN AS NEEDED T1212
     Route: 048
     Dates: start: 20090520, end: 20090803
  11. MAGMITT [Concomitant]
     Route: 048
     Dates: start: 20090522, end: 20090803
  12. FERROMIA [Concomitant]
     Dosage: FORM: ORAL FORMULATION (NOT OTHERWISE SPECIFIED)
     Route: 048
     Dates: start: 20090601, end: 20090803

REACTIONS (4)
  - DISEASE PROGRESSION [None]
  - DIVERTICULAR PERFORATION [None]
  - LARGE INTESTINE PERFORATION [None]
  - SUPRAVENTRICULAR TACHYCARDIA [None]
